FAERS Safety Report 9797722 (Version 1)
Quarter: 2014Q1

REPORT INFORMATION
  Report Type: Spontaneous
  Country: US (occurrence: US)
  Receive Date: 20140106
  Receipt Date: 20140106
  Transmission Date: 20141002
  Serious: No
  Sender: FDA-Public Use
  Company Number: US-BAYER-2013-154757

PATIENT
  Age: 37 Year
  Sex: Female
  Weight: 68.03 kg

DRUGS (1)
  1. YAZ [Suspect]
     Indication: POLYCYSTIC OVARIES
     Dosage: UNK
     Route: 048
     Dates: start: 200701, end: 200707

REACTIONS (7)
  - Emotional distress [Recovered/Resolved]
  - Off label use [None]
  - Emotional disorder [Recovered/Resolved]
  - Crying [Recovered/Resolved]
  - Anger [Recovered/Resolved]
  - Fatigue [Recovered/Resolved]
  - Muscle spasms [Recovered/Resolved]
